FAERS Safety Report 14546810 (Version 1)
Quarter: 2018Q1

REPORT INFORMATION
  Report Type: Spontaneous
  Country: ES (occurrence: ES)
  Receive Date: 20180219
  Receipt Date: 20180219
  Transmission Date: 20180509
  Serious: Yes (Other)
  Sender: FDA-Public Use
  Company Number: ES-MYLANLABS-2018M1010453

PATIENT
  Age: 28 Year
  Sex: Female

DRUGS (3)
  1. AZATHIOPRINE. [Suspect]
     Active Substance: AZATHIOPRINE
     Indication: CROHN^S DISEASE
     Route: 065
  2. MESALAZINE [Suspect]
     Active Substance: MESALAMINE
     Indication: CROHN^S DISEASE
  3. ADALIMUMAB [Suspect]
     Active Substance: ADALIMUMAB
     Indication: CROHN^S DISEASE
     Route: 065

REACTIONS (6)
  - Dysphonia [Unknown]
  - Tuberculosis [Unknown]
  - Productive cough [Unknown]
  - Off label use [Unknown]
  - Cough [Unknown]
  - Lymphadenopathy [Unknown]
